FAERS Safety Report 18744532 (Version 2)
Quarter: 2021Q1

REPORT INFORMATION
  Report Type: Spontaneous
  Country: GB (occurrence: GB)
  Receive Date: 20210115
  Receipt Date: 20210128
  Transmission Date: 20210419
  Serious: Yes (Hospitalization, Other)
  Sender: FDA-Public Use
  Company Number: GB-BAXTER-2021BAX000475

PATIENT
  Age: 68 Year
  Sex: Male

DRUGS (1)
  1. METRONIDAZOLE 5MG/ML SOLUTION FOR INFUSION [Suspect]
     Active Substance: METRONIDAZOLE
     Indication: GRAFT INFECTION
     Dosage: LONG?TERM
     Route: 065

REACTIONS (3)
  - Alien limb syndrome [Recovering/Resolving]
  - Toxic encephalopathy [Recovering/Resolving]
  - Fall [Recovering/Resolving]
